FAERS Safety Report 15065142 (Version 13)
Quarter: 2022Q2

REPORT INFORMATION
  Report Type: Other
  Country: IT (occurrence: IT)
  Receive Date: 20180626
  Receipt Date: 20220603
  Transmission Date: 20220721
  Serious: Yes (Hospitalization, Other)
  Sender: FDA-Public Use
  Company Number: IT-ROCHE-2026263

PATIENT
  Age: 67 Year
  Sex: Female
  Weight: 77 kg

DRUGS (22)
  1. TRASTUZUMAB [Suspect]
     Active Substance: TRASTUZUMAB
     Indication: Breast cancer metastatic
     Dosage: MOST RECENT DOSE PRIOR TO THE EVENT: 5/JAN/2018
     Route: 042
     Dates: start: 20170726, end: 20170726
  2. PERTUZUMAB [Suspect]
     Active Substance: PERTUZUMAB
     Indication: Breast cancer metastatic
     Dosage: MOST RECENT DOSE PRIOR TO THE EVENT: 05/OCT/2018
     Route: 042
     Dates: start: 20170818, end: 20170818
  3. DOCETAXEL [Suspect]
     Active Substance: DOCETAXEL
     Indication: Breast cancer metastatic
     Dosage: ON 06/DEC/2017, SHE RECEIVED MOST RECENT DOSE OF DOCETAXEL.
     Route: 042
     Dates: start: 20170726, end: 20170906
  4. LETROZOLE [Suspect]
     Active Substance: LETROZOLE
     Indication: Breast cancer metastatic
     Route: 048
     Dates: start: 20180209
  5. LEVOTHYROXINE SODIUM [Concomitant]
     Active Substance: LEVOTHYROXINE SODIUM
  6. LOPERAMIDE [Concomitant]
     Active Substance: LOPERAMIDE
     Indication: Diarrhoea
     Dosage: ONGOING = CHECKED
     Dates: start: 20180126
  7. LOPERAMIDE [Concomitant]
     Active Substance: LOPERAMIDE
     Dosage: ONGOING = CHECKED
     Dates: start: 20170906, end: 20191018
  8. TELMISARTAN [Concomitant]
     Active Substance: TELMISARTAN
     Dates: start: 20100310
  9. DELORAZEPAM [Concomitant]
     Active Substance: DELORAZEPAM
     Indication: Major depression
     Dates: start: 20131218, end: 20171113
  10. DELORAZEPAM [Concomitant]
     Active Substance: DELORAZEPAM
     Dates: start: 20171113
  11. VALPROIC ACID [Concomitant]
     Active Substance: VALPROIC ACID
     Dosage: ONGOING = CHECKED
     Dates: start: 20190128
  12. POTASSIUM ASPARTATE [Concomitant]
     Active Substance: POTASSIUM ASPARTATE
     Indication: Hypokalaemia
     Dates: start: 20200130
  13. SOLIFENACINA [Concomitant]
     Indication: Urinary incontinence
     Dates: start: 20200731
  14. MAGNESIUM [Concomitant]
     Active Substance: MAGNESIUM
     Indication: Hypomagnesaemia
     Dosage: ONGOING = CHECKED
     Dates: start: 20210322
  15. MAGNESIUM [Concomitant]
     Active Substance: MAGNESIUM
     Dosage: ONGOING = CHECKED
     Dates: start: 20180427
  16. KCL [Concomitant]
     Active Substance: POTASSIUM CHLORIDE
     Dosage: ONGOING = CHECKED
     Dates: start: 20180427
  17. KCL [Concomitant]
     Active Substance: POTASSIUM CHLORIDE
     Dosage: ONGOING = CHECKED
     Dates: start: 20210731
  18. UREA [Concomitant]
     Active Substance: UREA
     Indication: Pruritus
     Dosage: ONGOING = NOT CHECKED
     Dates: start: 20180926, end: 20190110
  19. CETIRIZINE HYDROCHLORIDE [Concomitant]
     Active Substance: CETIRIZINE HYDROCHLORIDE
     Indication: Pruritus
     Dosage: ONGOING = CHECKED
     Dates: start: 20181002, end: 20181215
  20. VALPROATE SODIUM [Concomitant]
     Active Substance: VALPROATE SODIUM
     Dosage: ONGOING = CHECKED
     Dates: start: 20181108, end: 20190127
  21. CHLORPHENIRAMINE [Concomitant]
     Active Substance: CHLORPHENIRAMINE
     Dosage: ONGOING = CHECKED
     Dates: start: 20170726
  22. MAGNESIUM SULFATE [Concomitant]
     Active Substance: MAGNESIUM SULFATE
     Indication: Hypomagnesaemia
     Dates: start: 20200403, end: 20210503

REACTIONS (2)
  - Major depression [Recovered/Resolved]
  - Major depression [Recovered/Resolved]

NARRATIVE: CASE EVENT DATE: 20171113
